FAERS Safety Report 10466539 (Version 1)
Quarter: 2014Q3

REPORT INFORMATION
  Report Type: Spontaneous
  Country: US (occurrence: None)
  Receive Date: 20140919
  Receipt Date: 20140919
  Transmission Date: 20150326
  Serious: Yes (Life-Threatening, Hospitalization, Disabling, Other)
  Sender: FDA-Public Use
  Company Number: None

PATIENT
  Age: 65 Year
  Sex: Female
  Weight: 64.86 kg

DRUGS (1)
  1. HUMIRA [Suspect]
     Active Substance: ADALIMUMAB
     Indication: RHEUMATOID ARTHRITIS
     Dosage: 40 MG/0.8 ML, INJECT ONE PEN SUB, GIVEN INTO/UNDER THE SKIN
     Dates: start: 20140808

REACTIONS (10)
  - Overdose [None]
  - Influenza like illness [None]
  - Joint swelling [None]
  - Oedema [None]
  - Peripheral swelling [None]
  - Coma [None]
  - Septic shock [None]
  - Chills [None]
  - Asthenia [None]
  - Tremor [None]

NARRATIVE: CASE EVENT DATE: 20140808
